FAERS Safety Report 6755393-7 (Version None)
Quarter: 2010Q2

REPORT INFORMATION
  Report Type: 
  Country: None (occurrence: None)
  Receive Date: 20100604
  Receipt Date: 20100524
  Transmission Date: 20101027
  Serious: Yes (Other)
  Sender: FDA-Public Use
  Company Number: CH-PFIZER INC-2010065338

PATIENT
  Age: 26 Year
  Sex: Female

DRUGS (1)
  1. LYRICA [Suspect]
     Dosage: 450 MG, 1X/DAY

REACTIONS (1)
  - DRUG DEPENDENCE [None]
